FAERS Safety Report 23768210 (Version 1)
Quarter: 2024Q2

REPORT INFORMATION
  Report Type: Spontaneous
  Country: CA (occurrence: CA)
  Receive Date: 20240422
  Receipt Date: 20240422
  Transmission Date: 20240716
  Serious: Yes (Other)
  Sender: FDA-Public Use
  Company Number: CA-SANDOZ-SDZ2024CA041227

PATIENT
  Age: 68 Year
  Sex: Female

DRUGS (1)
  1. HYRIMOZ [Suspect]
     Active Substance: ADALIMUMAB-ADAZ
     Indication: Product used for unknown indication
     Dosage: 40 MG (SINGLE-USE PREFILLED SYRINGE,1 EVERY 2 WEEKS)
     Route: 058

REACTIONS (2)
  - COVID-19 [Recovered/Resolved]
  - Treatment delayed [Recovered/Resolved]
